FAERS Safety Report 16411572 (Version 2)
Quarter: 2019Q3

REPORT INFORMATION
  Report Type: Report from Study
  Country: ZA (occurrence: ZA)
  Receive Date: 20190610
  Receipt Date: 20190708
  Transmission Date: 20191004
  Serious: No
  Sender: FDA-Public Use
  Company Number: ZA-REGENERON PHARMACEUTICALS, INC.-2019-35159

PATIENT

DRUGS (14)
  1. XAILIN [Concomitant]
     Indication: PRODUCT USED FOR UNKNOWN INDICATION
     Dosage: LEFT EYE
  2. AVASTIN [Concomitant]
     Active Substance: BEVACIZUMAB
     Dosage: OS (3RD)
     Dates: start: 20190326
  3. EYLEA [Suspect]
     Active Substance: AFLIBERCEPT
     Dosage: UNK
  4. AVASTIN [Concomitant]
     Active Substance: BEVACIZUMAB
     Indication: PRODUCT USED FOR UNKNOWN INDICATION
     Dosage: FIRST INJECTION OU
     Route: 031
     Dates: start: 20170822
  5. PRED MILD [Concomitant]
     Active Substance: PREDNISOLONE ACETATE
     Indication: PRODUCT USED FOR UNKNOWN INDICATION
  6. AVASTIN [Concomitant]
     Active Substance: BEVACIZUMAB
     Dosage: RIGHT PHACO + IOL AVASTIN  OU (3RD)
     Dates: start: 20171106
  7. EYLEA [Suspect]
     Active Substance: AFLIBERCEPT
     Indication: DIABETIC RETINOPATHY
     Dosage: 0.5 MG BOTH EYES. NUMBER OF EYLEA INJECTIONS: 3
     Route: 031
  8. NEVANAC [Concomitant]
     Active Substance: NEPAFENAC
     Indication: PRODUCT USED FOR UNKNOWN INDICATION
  9. AVASTIN [Concomitant]
     Active Substance: BEVACIZUMAB
     Dosage: OS (1ST)
     Dates: start: 20190116
  10. AVASTIN [Concomitant]
     Active Substance: BEVACIZUMAB
     Dosage: OS (2ND)
     Dates: start: 20190219
  11. SOLU-MEDROL [Concomitant]
     Active Substance: METHYLPREDNISOLONE SODIUM SUCCINATE
     Indication: PRODUCT USED FOR UNKNOWN INDICATION
     Dosage: 500 MG, BID HAD 4 DOSES
  12. COMBIGAN [Concomitant]
     Active Substance: BRIMONIDINE TARTRATE\TIMOLOL MALEATE
     Indication: PRODUCT USED FOR UNKNOWN INDICATION
  13. AVASTIN [Concomitant]
     Active Substance: BEVACIZUMAB
     Dosage: PRP + AVASTIN (2ND) IV IN THEATRE OU
     Dates: start: 20170928
  14. AVASTIN [Concomitant]
     Active Substance: BEVACIZUMAB
     Dosage: AVASTIN  OU (2ND)
     Dates: start: 20180226

REACTIONS (2)
  - Off label use [Unknown]
  - Product use in unapproved indication [Unknown]
